FAERS Safety Report 6143137-1 (Version None)
Quarter: 2009Q2

REPORT INFORMATION
  Report Type: 
  Country: None (occurrence: None)
  Receive Date: 20090401
  Receipt Date: 20090323
  Transmission Date: 20091009
  Serious: Yes (Other)
  Sender: FDA-Public Use
  Company Number: 2009AP001202

PATIENT
  Age: 32 Year
  Sex: Female

DRUGS (3)
  1. BENAZEPRIL HCL TABLETS [Suspect]
     Indication: HYPERTENSION
     Dosage: 10 MG;QD; 40 MG; QD
  2. METOPROLOL TARTRATE [Concomitant]
  3. HYDROCHLOROTHIAZIDE [Concomitant]

REACTIONS (15)
  - ALANINE AMINOTRANSFERASE INCREASED [None]
  - ASPARTATE AMINOTRANSFERASE INCREASED [None]
  - BILIRUBIN CONJUGATED INCREASED [None]
  - BLOOD ALBUMIN DECREASED [None]
  - BLOOD ALKALINE PHOSPHATASE INCREASED [None]
  - BLOOD BILIRUBIN INCREASED [None]
  - CHOLESTASIS [None]
  - GAMMA-GLUTAMYLTRANSFERASE INCREASED [None]
  - GLOMERULOSCLEROSIS [None]
  - HAEMODIALYSIS [None]
  - HEPATIC FUNCTION ABNORMAL [None]
  - HEPATIC NECROSIS [None]
  - PROTHROMBIN TIME SHORTENED [None]
  - RENAL FAILURE ACUTE [None]
  - TUBULOINTERSTITIAL NEPHRITIS [None]
